FAERS Safety Report 23814442 (Version 3)
Quarter: 2024Q2

REPORT INFORMATION
  Report Type: Spontaneous
  Country: NL (occurrence: NL)
  Receive Date: 20240503
  Receipt Date: 20240611
  Transmission Date: 20240716
  Serious: Yes (Death, Life-Threatening, Hospitalization, Other)
  Sender: FDA-Public Use
  Company Number: NL-SANDOZ-SDZ2024NL039766

PATIENT
  Age: 59 Year
  Sex: Male

DRUGS (1)
  1. DOLOPHINE [Suspect]
     Active Substance: METHADONE HYDROCHLORIDE
     Indication: Drug abuse
     Dosage: 120 MILLIGRAM, ONCE A DAY ((FOR YEARS))
     Route: 065

REACTIONS (10)
  - Electrocardiogram QT prolonged [Fatal]
  - Long QT syndrome [Fatal]
  - Ventricular fibrillation [Fatal]
  - Shock [Unknown]
  - Ventricular tachycardia [Fatal]
  - Syncope [Unknown]
  - Hypokalaemia [Unknown]
  - Cardiac arrest [Fatal]
  - Loss of consciousness [Unknown]
  - Epilepsy [Unknown]
